FAERS Safety Report 19634921 (Version 1)
Quarter: 2021Q3

REPORT INFORMATION
  Report Type: Spontaneous
  Country: US (occurrence: US)
  Receive Date: 20210730
  Receipt Date: 20210730
  Transmission Date: 20211014
  Serious: Yes (Hospitalization)
  Sender: FDA-Public Use
  Company Number: None

PATIENT
  Sex: Male

DRUGS (2)
  1. COPAXONE [Suspect]
     Active Substance: GLATIRAMER ACETATE
     Indication: MULTIPLE SCLEROSIS
     Dosage: ?          OTHER FREQUENCY:EVERY MON,WED,FRI;?
     Route: 058
     Dates: start: 20180216
  2. ELIQUIS TAB 2.5MG [Concomitant]
     Dates: start: 20210729

REACTIONS (2)
  - Fall [None]
  - Urinary tract infection [None]
